FAERS Safety Report 5395923-3 (Version None)
Quarter: 2007Q3

REPORT INFORMATION
  Report Type: 
  Country: None (occurrence: None)
  Receive Date: 20070724
  Receipt Date: 20070712
  Transmission Date: 20080115
  Serious: Yes (Hospitalization)
  Sender: FDA-Public Use
  Company Number: JP-PFIZER INC-2007052602

PATIENT
  Age: 21 Month
  Sex: Female

DRUGS (1)
  1. NORVASC [Suspect]
     Route: 048
     Dates: start: 20070625, end: 20070625

REACTIONS (1)
  - ACCIDENTAL EXPOSURE [None]
